FAERS Safety Report 18463921 (Version 13)
Quarter: 2022Q2

REPORT INFORMATION
  Report Type: Spontaneous
  Country: US (occurrence: US)
  Receive Date: 20201104
  Receipt Date: 20220614
  Transmission Date: 20220720
  Serious: Yes (Hospitalization, Other)
  Sender: FDA-Public Use
  Company Number: US-BIOCODEX2-202001336

PATIENT

DRUGS (26)
  1. DIACOMIT [Suspect]
     Active Substance: STIRIPENTOL
     Indication: Severe myoclonic epilepsy of infancy
     Dosage: 500 MG, QD (250MG TWICE DAILY)
     Route: 048
     Dates: start: 20200821, end: 20200921
  2. DIACOMIT [Suspect]
     Active Substance: STIRIPENTOL
     Dosage: 750 MG, QD (250MG EVERY MORNING AND 500MG AT NIGHT )
     Route: 048
     Dates: start: 20200922
  3. DIACOMIT [Suspect]
     Active Substance: STIRIPENTOL
     Dosage: 1000 MG, QD (500MG TWICE DAILY.)
     Route: 065
  4. DIACOMIT [Suspect]
     Active Substance: STIRIPENTOL
     Dosage: 1000 MG, QD (500MG TWICE DAILY : TAKE 2 PACKETS BY MOUTH TWICE A DAY WITH MEALS. DISSOLVE EACH IN 5M
     Route: 048
  5. DIACOMIT [Suspect]
     Active Substance: STIRIPENTOL
     Dosage: 1000 MG, QD (500MG TWICE DAILY.)
     Route: 065
  6. DIACOMIT [Suspect]
     Active Substance: STIRIPENTOL
     Dosage: 500 MG, QD (250MG TWICE DAILY)
     Route: 065
     Dates: start: 20200811
  7. DIACOMIT [Suspect]
     Active Substance: STIRIPENTOL
     Dosage: 1000 MG, QD (500MG TWICE A DAY)
     Route: 065
  8. DIACOMIT [Suspect]
     Active Substance: STIRIPENTOL
     Dosage: 500 MG, QD (250MG, TAKE 2 PACKETS BY MOUTH TWICE A DAY WITH MEALS. DISSOLVE EACH IN 5ML OF WATER. NO
     Route: 048
  9. DIACOMIT [Suspect]
     Active Substance: STIRIPENTOL
     Dosage: 1000 MG, QD (250MG, TAKE 2 PACKETS BY MOUTH TWICE A DAY WITH MEALS. DISSOLVE EACH IN 5ML OF WATER. N
     Route: 048
  10. CLOBAZAM [Concomitant]
     Active Substance: CLOBAZAM
     Indication: Severe myoclonic epilepsy of infancy
     Dosage: 5 MG, QD
     Dates: start: 20211119
  11. VALPROIC ACID [Concomitant]
     Active Substance: VALPROIC ACID
     Indication: Epilepsy
     Dosage: 125MG TWICE DAILY.
     Dates: start: 20200728, end: 20201003
  12. VALPROIC ACID [Concomitant]
     Active Substance: VALPROIC ACID
     Dosage: 175MG TWICE DAILY.
     Route: 048
     Dates: start: 20201004
  13. VALPROIC ACID [Concomitant]
     Active Substance: VALPROIC ACID
     Dosage: 300MG TWICE DAILY
     Route: 048
  14. LEVETIRACETAM [Concomitant]
     Active Substance: LEVETIRACETAM
     Indication: Epilepsy
     Dosage: 100MG TWICE DAILY
     Dates: start: 20181222, end: 20190206
  15. LEVETIRACETAM [Concomitant]
     Active Substance: LEVETIRACETAM
     Indication: Epilepsy
     Dosage: 180MG TWICE DAILY
     Route: 048
     Dates: start: 20190207, end: 20190916
  16. LEVETIRACETAM [Concomitant]
     Active Substance: LEVETIRACETAM
     Dosage: 200MG TWICE DAILY
     Route: 048
     Dates: start: 20190917, end: 20200331
  17. LEVETIRACETAM [Concomitant]
     Active Substance: LEVETIRACETAM
     Dosage: 300MG TWICE DAILY
     Route: 048
     Dates: start: 20200401, end: 20200615
  18. LEVETIRACETAM [Concomitant]
     Active Substance: LEVETIRACETAM
     Dosage: 350MG TWICE DAILY
     Route: 048
     Dates: start: 20200616
  19. DEPAKOTE SPRINKLES [Concomitant]
     Active Substance: DIVALPROEX SODIUM
     Indication: Epilepsy
     Dosage: 125MG TWICE DAILY
     Dates: start: 20200616, end: 20200821
  20. DIASTAT ACUDIAL [Concomitant]
     Active Substance: DIAZEPAM
     Indication: Product used for unknown indication
     Route: 065
  21. KEPPRA [Concomitant]
     Active Substance: LEVETIRACETAM
     Indication: Epilepsy
     Dosage: 3.5ML TWICE DAILY
     Dates: start: 20181222
  22. KEPPRA [Concomitant]
     Active Substance: LEVETIRACETAM
     Dosage: 350MG TWICE DAILY
  23. PYRIDOXINE HYDROCHLORIDE [Concomitant]
     Active Substance: PYRIDOXINE HYDROCHLORIDE
     Indication: Epilepsy
     Dosage: 100 MG, QD
     Dates: start: 20200401
  24. VITAMIN B6 [Concomitant]
     Active Substance: PYRIDOXINE HYDROCHLORIDE
     Indication: Product used for unknown indication
     Route: 065
  25. VITAMIN B6 [Concomitant]
     Active Substance: PYRIDOXINE HYDROCHLORIDE
  26. NAYZILAM [Concomitant]
     Active Substance: MIDAZOLAM
     Indication: Epilepsy
     Dosage: 5MG PER SPRAY AS NEEDED.
     Dates: start: 20201203

REACTIONS (8)
  - Seizure [Unknown]
  - Restlessness [Unknown]
  - Asthenia [Unknown]
  - Decreased appetite [Unknown]
  - Insomnia [Unknown]
  - Fatigue [Unknown]
  - Product dose omission issue [Recovered/Resolved]
  - Incorrect dose administered [Recovered/Resolved]

NARRATIVE: CASE EVENT DATE: 20220508
